FAERS Safety Report 6706878-0 (Version None)
Quarter: 2010Q2

REPORT INFORMATION
  Report Type: 
  Country: None (occurrence: None)
  Receive Date: 20100503
  Receipt Date: 20100420
  Transmission Date: 20101027
  Serious: Yes (Other)
  Sender: FDA-Public Use
  Company Number: US-GENZYME-CLOF-1000888

PATIENT
  Sex: Female
  Weight: 106.7 kg

DRUGS (6)
  1. CLOLAR [Suspect]
     Indication: ACUTE MYELOID LEUKAEMIA
     Dosage: 20 MG, QD
     Route: 042
     Dates: start: 20090705, end: 20090705
  2. CLOLAR [Suspect]
     Dosage: 20 MG, QD
     Route: 042
     Dates: start: 20090706, end: 20090709
  3. GEMTUZUMAB OZOGAMICIN [Suspect]
     Indication: ACUTE MYELOID LEUKAEMIA
     Dosage: 3 MG/M2, UNK
     Route: 065
     Dates: start: 20090705, end: 20090711
  4. VANCOMYCIN [Concomitant]
     Indication: SEPSIS
     Dosage: 1 G, TID
     Route: 042
     Dates: start: 20090717, end: 20090725
  5. MICAFUNGIN [Concomitant]
     Indication: SEPSIS
     Dosage: 100 MG, QD
     Route: 042
     Dates: start: 20090720, end: 20090731
  6. VALACICLOVIR [Concomitant]
     Indication: SEPSIS
     Dosage: 500 MG, QD
     Route: 048
     Dates: start: 20090720, end: 20090803

REACTIONS (11)
  - ALANINE AMINOTRANSFERASE INCREASED [None]
  - BLOOD BILIRUBIN INCREASED [None]
  - ENCEPHALOPATHY [None]
  - HYPONATRAEMIA [None]
  - HYPOPHOSPHATAEMIA [None]
  - LYMPHOPENIA [None]
  - NEUTROPENIA [None]
  - PSYCHOTIC DISORDER [None]
  - RETROGRADE PORTAL VEIN FLOW [None]
  - SOMNOLENCE [None]
  - THROMBOCYTOPENIA [None]
